FAERS Safety Report 12179718 (Version 2)
Quarter: 2016Q2

REPORT INFORMATION
  Report Type: Report from Study
  Country: US (occurrence: US)
  Receive Date: 20160314
  Receipt Date: 20160422
  Transmission Date: 20160815
  Serious: Yes (Hospitalization)
  Sender: FDA-Public Use
  Company Number: US-TAKEDA-2015MPI006921

PATIENT
  Age: 90 Year
  Sex: Female
  Weight: 48.8 kg

DRUGS (20)
  1. LENALIDOMIDE [Suspect]
     Active Substance: LENALIDOMIDE
     Indication: PLASMA CELL MYELOMA
     Dosage: 10 MG, UNK
     Route: 048
     Dates: start: 20151005, end: 20151016
  2. VITAMIN D3 [Concomitant]
     Active Substance: CHOLECALCIFEROL
     Dosage: UNK, QD
     Route: 048
  3. FLAXSEED [Concomitant]
     Active Substance: FLAX SEED
     Dosage: UNK, QD
  4. TYLENOL [Concomitant]
     Active Substance: ACETAMINOPHEN
     Dosage: 500 MG, TID
     Route: 048
  5. CALCIUM MAGNESIUM ZINC             /01320801/ [Concomitant]
     Dosage: UNK, BID
     Route: 048
  6. ZOVIRAX [Concomitant]
     Active Substance: ACYCLOVIR
     Dosage: 400 MG, BID
     Route: 048
  7. ARTIFICIAL TEARS                   /00222401/ [Concomitant]
     Route: 047
  8. B COMPLEX VITAMIN         /00003501/ [Concomitant]
     Dosage: UNK, QD
     Route: 048
  9. VITAMIN B12 [Concomitant]
     Active Substance: CYANOCOBALAMIN
     Dosage: 100 UNK, UNK
     Route: 060
  10. BLINDED PLACEBO [Suspect]
     Active Substance: INVESTIGATIONAL PRODUCT
     Indication: PLASMA CELL MYELOMA
     Dosage: 4 MG, UNK
     Route: 048
     Dates: start: 20151005, end: 20151012
  11. DEXAMETHASONE. [Suspect]
     Active Substance: DEXAMETHASONE
     Indication: PLASMA CELL MYELOMA
     Dosage: 20 MG, UNK
     Route: 048
     Dates: start: 20151005, end: 20151012
  12. ASPIR-81 [Concomitant]
     Active Substance: ASPIRIN
     Dosage: UNK, QD
     Route: 048
  13. CURCUMIN [Concomitant]
     Active Substance: CURCUMIN
     Dosage: UNK, QD
  14. PRAVACHOL [Concomitant]
     Active Substance: PRAVASTATIN SODIUM
     Dosage: 20 MG, QD
     Route: 048
  15. COMPAZINE [Concomitant]
     Active Substance: PROCHLORPERAZINE MALEATE
     Dosage: 10 MG, UNK
     Route: 048
  16. BLINDED IXAZOMIB [Suspect]
     Active Substance: IXAZOMIB
     Indication: PLASMA CELL MYELOMA
     Dosage: 4 MG, UNK
     Route: 048
     Dates: start: 20151005, end: 20151012
  17. COENZYME Q10 [Concomitant]
     Active Substance: UBIDECARENONE
     Dosage: 100 MG, QD
     Route: 048
  18. FISH OIL 360 [Concomitant]
     Dosage: 1200 MG, QD
     Route: 048
  19. GLUCOSAMINE SULFATE [Concomitant]
     Active Substance: GLUCOSAMINE SULFATE
     Dosage: 500 MG, QD
     Route: 048
  20. VITAMIN C [Concomitant]
     Active Substance: ASCORBIC ACID
     Dosage: 500 MG, QD
     Route: 048

REACTIONS (2)
  - Rash macular [Recovering/Resolving]
  - Diarrhoea [Recovered/Resolved]

NARRATIVE: CASE EVENT DATE: 20151016
